FAERS Safety Report 21377967 (Version 1)
Quarter: 2022Q3

REPORT INFORMATION
  Report Type: Report from Study
  Country: US (occurrence: US)
  Receive Date: 20220926
  Receipt Date: 20220926
  Transmission Date: 20221026
  Serious: Yes (Hospitalization)
  Sender: FDA-Public Use
  Company Number: US-ABBVIE-4129933

PATIENT
  Age: 62 Year
  Sex: Male
  Weight: 79.378 kg

DRUGS (3)
  1. IMBRUVICA [Suspect]
     Active Substance: IBRUTINIB
     Indication: Chronic lymphocytic leukaemia
     Route: 048
     Dates: start: 201508, end: 20220701
  2. MODERNA COVID-19 VACCINE [Concomitant]
     Active Substance: ELASOMERAN
     Indication: COVID-19 immunisation
     Dosage: BOOSTER VACCINE/ THIRD DOSE?FREQUENCY: ONE IN ONCE
     Route: 030
     Dates: start: 20211231, end: 20211231
  3. JANSSEN COVID-19 VACCINE [Concomitant]
     Active Substance: AD26.COV2.S
     Indication: COVID-19 immunisation
     Dosage: FIRST DOSE?FREQUENCY: ONE IN ONCE
     Route: 030
     Dates: start: 20210306, end: 20210306

REACTIONS (2)
  - Pneumonia [Recovered/Resolved]
  - Pneumonia fungal [Recovering/Resolving]

NARRATIVE: CASE EVENT DATE: 20150101
